FAERS Safety Report 11615089 (Version 1)
Quarter: 2015Q4

REPORT INFORMATION
  Report Type: Spontaneous
  Country: DE (occurrence: DE)
  Receive Date: 20151009
  Receipt Date: 20151009
  Transmission Date: 20160304
  Serious: Yes (Other)
  Sender: FDA-Public Use
  Company Number: DE-JNJFOC-20151005287

PATIENT
  Sex: Female
  Weight: 92.6 kg

DRUGS (2)
  1. XARELTO [Suspect]
     Active Substance: RIVAROXABAN
     Indication: EMBOLISM VENOUS
     Route: 048
     Dates: start: 201405, end: 20150910
  2. XARELTO [Suspect]
     Active Substance: RIVAROXABAN
     Indication: THROMBOSIS
     Route: 048
     Dates: start: 201405, end: 20150910

REACTIONS (11)
  - Sleep disorder [Unknown]
  - Vertigo [Unknown]
  - Tic [Unknown]
  - Dry mouth [Unknown]
  - Swollen tongue [Unknown]
  - Aggression [Unknown]
  - Dyskinesia [Unknown]
  - Arthropathy [Unknown]
  - Anxiety [Unknown]
  - Alopecia [Unknown]
  - Weight decreased [Unknown]
